FAERS Safety Report 4286421-9 (Version None)
Quarter: 2004Q1

REPORT INFORMATION
  Report Type: 
  Country: None (occurrence: None)
  Receive Date: 20040204
  Receipt Date: 20040126
  Transmission Date: 20041129
  Serious: Yes (Other)
  Sender: FDA-Public Use
  Company Number: BIVUS040004

PATIENT
  Age: 66 Year
  Sex: Female

DRUGS (8)
  1. ANGIOMAX [Suspect]
     Indication: ANTICOAGULANT THERAPY
     Dosage: SEE IMAGE
     Route: 040
     Dates: start: 20040126, end: 20040126
  2. ANGIOMAX [Suspect]
     Indication: CORONARY ANGIOPLASTY
     Dosage: SEE IMAGE
     Route: 040
     Dates: start: 20040126, end: 20040126
  3. ANGIOMAX [Suspect]
     Indication: ANTICOAGULANT THERAPY
     Dosage: SEE IMAGE
     Route: 040
     Dates: start: 20040126, end: 20040126
  4. ANGIOMAX [Suspect]
     Indication: CORONARY ANGIOPLASTY
     Dosage: SEE IMAGE
     Route: 040
     Dates: start: 20040126, end: 20040126
  5. OPTIRAY (IOVERSOL) [Suspect]
     Dosage: 100CC, INTRAVENOUS
     Route: 042
     Dates: start: 20040126, end: 20040126
  6. SOLU-MEDROL [Concomitant]
  7. BENADRYL [Concomitant]
  8. TAGAMET [Concomitant]

REACTIONS (6)
  - BLOOD PRESSURE DECREASED [None]
  - CONTRAST MEDIA REACTION [None]
  - DRUG HYPERSENSITIVITY [None]
  - DYSPNOEA [None]
  - ERYTHEMA [None]
  - PRURITUS [None]
